FAERS Safety Report 4340307-X (Version None)
Quarter: 2004Q2

REPORT INFORMATION
  Report Type: 
  Country: None (occurrence: None)
  Receive Date: 20040409
  Receipt Date: 20040329
  Transmission Date: 20050107
  Serious: Yes (Death, Life-Threatening)
  Sender: FDA-Public Use
  Company Number: IGH/04/07/UNK

PATIENT
  Age: 38 Year
  Sex: Male

DRUGS (5)
  1. IMMUNE GLOBULIN INTRAVENOUS (HUMAN) [Suspect]
     Indication: BONE MARROW TRANSPLANT
  2. CAMPATH [Suspect]
     Indication: BONE MARROW TRANSPLANT
     Dosage: 20 MG, CYCLICAL
  3. FLUDARABINE (FLUDARABINE) [Suspect]
     Indication: BONE MARROW TRANSPLANT
     Dosage: 30 MG/M2, CYCLICAL
  4. MELPHALAN (MELPHALAN) [Suspect]
     Indication: BONE MARROW TRANSPLANT
     Dosage: 140 MG/M2, CYCLICAL
  5. CYCLOSPORINE [Suspect]
     Indication: BONE MARROW TRANSPLANT

REACTIONS (5)
  - ADENOVIRAL HEPATITIS [None]
  - ADENOVIRUS INFECTION [None]
  - GASTROINTESTINAL DISORDER [None]
  - GRAFT VERSUS HOST DISEASE [None]
  - HEPATIC FAILURE [None]
